FAERS Safety Report 8461813-2 (Version None)
Quarter: 2012Q2

REPORT INFORMATION
  Report Type: 
  Country: None (occurrence: None)
  Receive Date: 20120625
  Receipt Date: 20120614
  Transmission Date: 20120825
  Serious: Yes (Death)
  Sender: FDA-Public Use
  Company Number: US-BRISTOL-MYERS SQUIBB COMPANY-16687303

PATIENT

DRUGS (1)
  1. YERVOY [Suspect]
     Dosage: 1DF =5MH/ML, STRENGTH:YERVOY 200MG/40ML YERVOY 50MG/10ML,NDC:00003-2327-11,918360,EP7/14

REACTIONS (1)
  - DEATH [None]
